FAERS Safety Report 9638826 (Version 1)
Quarter: 2013Q4

REPORT INFORMATION
  Report Type: Spontaneous
  Country: US (occurrence: US)
  Receive Date: 20131022
  Receipt Date: 20131022
  Transmission Date: 20140711
  Serious: No
  Sender: FDA-Public Use
  Company Number: US-BRISTOL-MYERS SQUIBB COMPANY-19159938

PATIENT
  Age: 90 Year
  Sex: Male
  Weight: 72.56 kg

DRUGS (1)
  1. ELIQUIS [Suspect]
     Indication: ATRIAL FIBRILLATION
     Dosage: 2.5 MG PRESENTLY TAKING

REACTIONS (1)
  - Drug administration error [Unknown]
